FAERS Safety Report 6276184-X (Version None)
Quarter: 2009Q3

REPORT INFORMATION
  Report Type: 
  Country: None (occurrence: None)
  Receive Date: 20090722
  Receipt Date: 20090717
  Transmission Date: 20100115
  Serious: Yes (Hospitalization)
  Sender: FDA-Public Use
  Company Number: US-BRISTOL-MYERS SQUIBB COMPANY-14705594

PATIENT
  Sex: Male

DRUGS (2)
  1. KENALOG [Suspect]
     Indication: BACK PAIN
     Dosage: TRANSFORAMINAL EPIDURAL STEROID INJECTION
     Route: 008
  2. KENALOG [Suspect]
     Indication: PAIN IN EXTREMITY
     Dosage: TRANSFORAMINAL EPIDURAL STEROID INJECTION
     Route: 008

REACTIONS (1)
  - MYOCARDIAL INFARCTION [None]
